FAERS Safety Report 8936033 (Version 1)
Quarter: 2012Q4

REPORT INFORMATION
  Report Type: 
  Country: US (occurrence: US)
  Receive Date: 20121130
  Receipt Date: 20121130
  Transmission Date: 20130627
  Serious: No
  Sender: FDA-Public Use
  Company Number: US-PFIZER INC-2012299282

PATIENT
  Age: 36 Year
  Sex: Female

DRUGS (4)
  1. PRISTIQ [Suspect]
     Indication: DEPRESSION
     Dosage: 100 mg, daily
     Dates: start: 2010
  2. PRISTIQ [Suspect]
     Indication: SOCIAL ANXIETY DISORDER
  3. XANAX [Suspect]
     Indication: ANXIETY
     Dosage: UNK, as needed
  4. XANAX [Suspect]
     Indication: PANIC ATTACKS

REACTIONS (3)
  - Off label use [Unknown]
  - Fatigue [Unknown]
  - Loss of libido [Unknown]
